FAERS Safety Report 8080394-9 (Version None)
Quarter: 2012Q1

REPORT INFORMATION
  Report Type: 
  Country: None (occurrence: None)
  Receive Date: 20120130
  Receipt Date: 20120130
  Transmission Date: 20120608
  Serious: Yes (Hospitalization, Other)
  Sender: FDA-Public Use
  Company Number: US-JNJFOC-20110907523

PATIENT
  Sex: Female
  Weight: 13.6 kg

DRUGS (6)
  1. AZATHIOPRINE [Concomitant]
  2. PREDNISONE TAB [Concomitant]
  3. CORTIFOAM [Concomitant]
  4. REMICADE [Suspect]
     Route: 042
     Dates: start: 20091019
  5. REMICADE [Suspect]
     Route: 042
     Dates: start: 20090915
  6. REMICADE [Suspect]
     Indication: CROHN'S DISEASE
     Route: 042

REACTIONS (2)
  - SMALL INTESTINAL OBSTRUCTION [None]
  - CROHN'S DISEASE [None]
